FAERS Safety Report 5162248-0 (Version None)
Quarter: 2006Q4

REPORT INFORMATION
  Report Type: 
  Country: None (occurrence: None)
  Receive Date: 20061121
  Receipt Date: 20061113
  Transmission Date: 20070319
  Serious: Yes (Other)
  Sender: FDA-Public Use
  Company Number: HQWYE263720JUL04

PATIENT
  Age: 58 Year
  Sex: Female
  Weight: 69.01 kg

DRUGS (2)
  1. PREMARIN [Suspect]
  2. PROVERA [Suspect]

REACTIONS (11)
  - ARTHRALGIA [None]
  - AUTOIMMUNE THYROIDITIS [None]
  - BREAST CANCER METASTATIC [None]
  - DRUG TOXICITY [None]
  - METASTASES TO LYMPH NODES [None]
  - MYALGIA [None]
  - OESTROGEN RECEPTOR ASSAY POSITIVE [None]
  - PLASMACYTOMA [None]
  - PROGESTERONE RECEPTOR ASSAY POSITIVE [None]
  - THROMBOPHLEBITIS SUPERFICIAL [None]
  - THYROID DISORDER [None]
